FAERS Safety Report 25191972 (Version 1)
Quarter: 2025Q2

REPORT INFORMATION
  Report Type: Spontaneous
  Country: TR (occurrence: TR)
  Receive Date: 20250414
  Receipt Date: 20250414
  Transmission Date: 20250717
  Serious: Yes (Other)
  Sender: AMGEN
  Company Number: TR-AMGEN-TURSP2025066349

PATIENT
  Age: 81 Year
  Sex: Male

DRUGS (2)
  1. BEVACIZUMAB [Suspect]
     Active Substance: BEVACIZUMAB
     Indication: Vitreous haemorrhage
     Route: 065
  2. BROMELAINS [Concomitant]
     Active Substance: BROMELAINS
     Route: 048

REACTIONS (3)
  - Choroidal haemorrhage [Unknown]
  - Drug effective for unapproved indication [Unknown]
  - Off label use [Unknown]
